FAERS Safety Report 9612915 (Version 1)
Quarter: 2013Q4

REPORT INFORMATION
  Report Type: Spontaneous
  Country: US (occurrence: US)
  Receive Date: 20131010
  Receipt Date: 20131010
  Transmission Date: 20140711
  Serious: Yes (Hospitalization, Other)
  Sender: FDA-Public Use
  Company Number: US-ELI_LILLY_AND_COMPANY-US201310001784

PATIENT
  Age: 89 Year
  Sex: Female

DRUGS (5)
  1. HUMALOG LISPRO [Suspect]
     Indication: TYPE 2 DIABETES MELLITUS
     Dosage: UNK UNK, PRN
     Dates: start: 201212
  2. KEPPRA [Suspect]
  3. LANTUS [Suspect]
  4. CINNAMON                           /01647501/ [Concomitant]
  5. VITAMIN B [Concomitant]

REACTIONS (12)
  - Colon cancer [Unknown]
  - Convulsion [Unknown]
  - Fall [Recovered/Resolved]
  - Joint injury [Unknown]
  - Urinary tract infection [Unknown]
  - Sepsis [Unknown]
  - Skin exfoliation [Unknown]
  - Pruritus [Unknown]
  - Rash [Unknown]
  - Drug hypersensitivity [Unknown]
  - Blood glucose abnormal [Unknown]
  - Blood glucose increased [Unknown]
